FAERS Safety Report 10730473 (Version 1)
Quarter: 2015Q1

REPORT INFORMATION
  Report Type: Spontaneous
  Country: US (occurrence: US)
  Receive Date: 20150122
  Receipt Date: 20150122
  Transmission Date: 20150721
  Serious: No
  Sender: FDA-Public Use
  Company Number: US-009507513-1501USA003957

PATIENT
  Age: 26 Year
  Sex: Female
  Weight: 63.49 kg

DRUGS (3)
  1. NUVARING [Suspect]
     Active Substance: ETHINYL ESTRADIOL\ETONOGESTREL
     Indication: DYSMENORRHOEA
  2. NUVARING [Suspect]
     Active Substance: ETHINYL ESTRADIOL\ETONOGESTREL
     Indication: MENSTRUAL CYCLE MANAGEMENT
     Dosage: UNK
     Route: 067
     Dates: start: 2009
  3. NUVARING [Suspect]
     Active Substance: ETHINYL ESTRADIOL\ETONOGESTREL
     Indication: GASTRIC DISORDER
     Dosage: 1 RING / 1 WEEK IN
     Route: 067
     Dates: start: 20150105

REACTIONS (6)
  - Affective disorder [Unknown]
  - Gastric disorder [Unknown]
  - Drug administration error [Unknown]
  - Ovarian cyst [Unknown]
  - Adnexa uteri pain [Unknown]
  - Abdominal pain upper [Unknown]

NARRATIVE: CASE EVENT DATE: 201501
